FAERS Safety Report 20573023 (Version 1)
Quarter: 2022Q1

REPORT INFORMATION
  Report Type: Spontaneous
  Country: US (occurrence: US)
  Receive Date: 20220309
  Receipt Date: 20220309
  Transmission Date: 20220423
  Serious: Yes (Other)
  Sender: FDA-Public Use
  Company Number: US-ELI_LILLY_AND_COMPANY-US202202011447

PATIENT
  Age: 59 Year
  Sex: Female

DRUGS (1)
  1. TRULICITY [Suspect]
     Active Substance: DULAGLUTIDE
     Indication: Type 2 diabetes mellitus
     Dosage: 1.5 MG, UNKNOWN
     Route: 065
     Dates: start: 202201

REACTIONS (12)
  - Loss of consciousness [Unknown]
  - Dehydration [Unknown]
  - Renal disorder [Unknown]
  - Head injury [Unknown]
  - Urinary tract infection [Unknown]
  - Dizziness [Unknown]
  - Feeling abnormal [Unknown]
  - Viral infection [Unknown]
  - Nausea [Unknown]
  - Abdominal pain [Unknown]
  - Malaise [Unknown]
  - Product storage error [Unknown]

NARRATIVE: CASE EVENT DATE: 20220220
